FAERS Safety Report 5218788-9 (Version None)
Quarter: 2007Q1

REPORT INFORMATION
  Report Type: 
  Country: None (occurrence: None)
  Receive Date: 20070123
  Receipt Date: 20070116
  Transmission Date: 20070707
  Serious: Yes (Hospitalization, Other)
  Sender: FDA-Public Use
  Company Number: WAES 0701USA02017

PATIENT
  Age: 52 Year
  Sex: Female
  Weight: 162.8413 kg

DRUGS (10)
  1. DECADRON [Suspect]
     Indication: PREMEDICATION
     Dosage: 20 MG/DAILY/PO; 8 MG/DAILY/PO
     Route: 048
     Dates: start: 20060105
  2. DECADRON [Suspect]
     Indication: PROPHYLAXIS
     Dosage: 20 MG/DAILY/PO; 8 MG/DAILY/PO
     Route: 048
     Dates: start: 20060105
  3. DECADRON [Suspect]
     Indication: PREMEDICATION
     Dosage: 20 MG/DAILY/PO; 8 MG/DAILY/PO
     Route: 048
     Dates: start: 20060301
  4. DECADRON [Suspect]
     Indication: PROPHYLAXIS
     Dosage: 20 MG/DAILY/PO; 8 MG/DAILY/PO
     Route: 048
     Dates: start: 20060301
  5. ATIVAN [Concomitant]
  6. TUMS [Concomitant]
  7. INJ PROCRIT UNK [Suspect]
     Indication: ANAEMIA OF MALIGNANT DISEASE
     Dosage: 120000 IU/Q3W/SC
     Route: 058
     Dates: start: 20060217, end: 20060511
  8. TAXOTERE [Suspect]
     Indication: BREAST CANCER
  9. ZOFRAN [Concomitant]
  10. IBUPROFEN [Concomitant]

REACTIONS (14)
  - ALOPECIA [None]
  - DEEP VEIN THROMBOSIS [None]
  - DIVERTICULUM [None]
  - FACTOR V LEIDEN MUTATION [None]
  - FATIGUE [None]
  - HIATUS HERNIA [None]
  - HYPERCOAGULATION [None]
  - LUNG NEOPLASM [None]
  - NAUSEA [None]
  - OEDEMA PERIPHERAL [None]
  - PULMONARY ARTERY THROMBOSIS [None]
  - PULMONARY EMBOLISM [None]
  - REFUSAL OF TREATMENT BY PATIENT [None]
  - THERAPEUTIC RESPONSE DECREASED [None]
